FAERS Safety Report 6373388-2 (Version None)
Quarter: 2009Q3

REPORT INFORMATION
  Report Type: 
  Country: None (occurrence: None)
  Receive Date: 20090924
  Receipt Date: 20090325
  Transmission Date: 20100115
  Serious: No
  Sender: FDA-Public Use
  Company Number: US-ASTRAZENECA-2009UW07618

PATIENT
  Age: 51 Year
  Sex: Male

DRUGS (3)
  1. SEROQUEL XR [Suspect]
     Route: 048
     Dates: start: 20070101, end: 20090323
  2. CYMBALTA [Concomitant]
  3. ATIVAN [Concomitant]

REACTIONS (5)
  - CONFUSIONAL STATE [None]
  - FREQUENT BOWEL MOVEMENTS [None]
  - INSOMNIA [None]
  - MALAISE [None]
  - NERVOUSNESS [None]
